FAERS Safety Report 8016149-0 (Version None)
Quarter: 2011Q4

REPORT INFORMATION
  Report Type: 
  Country: None (occurrence: None)
  Receive Date: 20111228
  Receipt Date: 20111228
  Transmission Date: 20120403
  Serious: Yes (Hospitalization)
  Sender: FDA-Public Use
  Company Number: None

PATIENT
  Age: 83 Year
  Sex: Male
  Weight: 98 kg

DRUGS (1)
  1. GABAPENTIN [Suspect]
     Indication: PAIN
     Dosage: 300 MG OTHER PO
     Route: 048
     Dates: start: 20110818

REACTIONS (3)
  - HYPOTENSION [None]
  - SYNCOPE [None]
  - EYE MOVEMENT DISORDER [None]
